FAERS Safety Report 13599110 (Version 1)
Quarter: 2017Q2

REPORT INFORMATION
  Report Type: Spontaneous
  Country: DE (occurrence: DE)
  Receive Date: 20170531
  Receipt Date: 20170531
  Transmission Date: 20170830
  Serious: Yes (Hospitalization, Other)
  Sender: FDA-Public Use
  Company Number: DE-BAYER-2017-096716

PATIENT
  Sex: Male

DRUGS (1)
  1. CIPROBAY [Suspect]
     Active Substance: CIPROFLOXACIN
     Indication: GASTROINTESTINAL INFLAMMATION
     Dosage: 18 DF, UNK
     Route: 042
     Dates: start: 201203

REACTIONS (7)
  - Arthralgia [None]
  - Gastrointestinal disorder [None]
  - Bone marrow disorder [None]
  - Platelet count increased [None]
  - Pancreatitis [None]
  - Overdose [None]
  - Arthritis [None]
